FAERS Safety Report 9262138 (Version 1)
Quarter: 2013Q2

REPORT INFORMATION
  Report Type: Spontaneous
  Country: CH (occurrence: CH)
  Receive Date: 20130430
  Receipt Date: 20130430
  Transmission Date: 20140414
  Serious: Yes (Life-Threatening, Hospitalization)
  Sender: FDA-Public Use
  Company Number: CH-ROCHE-1218484

PATIENT
  Age: 39 Year
  Sex: Female

DRUGS (5)
  1. CELLCEPT [Suspect]
     Indication: RENAL TRANSPLANT
     Route: 048
     Dates: start: 2000, end: 20130328
  2. CELLCEPT [Suspect]
     Route: 048
  3. NOVALGIN [Suspect]
     Indication: ARTHRALGIA
     Route: 048
     Dates: start: 20130218, end: 20130328
  4. SANDIMMUN NEORAL [Concomitant]
     Indication: RENAL TRANSPLANT
     Route: 048
     Dates: start: 2000
  5. SANDIMMUN NEORAL [Concomitant]
     Route: 048

REACTIONS (2)
  - Granulocytopenia [Recovered/Resolved]
  - Febrile neutropenia [Recovered/Resolved]
